FAERS Safety Report 11786532 (Version 1)
Quarter: 2015Q4

REPORT INFORMATION
  Report Type: Spontaneous
  Country: US (occurrence: US)
  Receive Date: 20151130
  Receipt Date: 20151130
  Transmission Date: 20160305
  Serious: No
  Sender: FDA-Public Use
  Company Number: US-BIOCOMPATIBLES UK LTD-BTG00476

PATIENT

DRUGS (1)
  1. CROFAB [Suspect]
     Active Substance: CROTALIDAE POLYVALENT IMMUNE FAB (OVINE)
     Indication: ACCIDENTAL EXPOSURE TO PRODUCT
     Dosage: APPROXIMATELY 1CC
     Route: 048
     Dates: start: 20150918, end: 20150918

REACTIONS (1)
  - Accidental exposure to product [Unknown]

NARRATIVE: CASE EVENT DATE: 20150918
